FAERS Safety Report 9609282 (Version 2)
Quarter: 2013Q4

REPORT INFORMATION
  Report Type: Other
  Country: IT (occurrence: IT)
  Receive Date: 20131009
  Receipt Date: 20131009
  Transmission Date: 20140711
  Serious: Yes (Hospitalization)
  Sender: FDA-Public Use
  Company Number: IT-TAKEDA-2013TEU000811

PATIENT
  Sex: 0

DRUGS (3)
  1. LANSOPRAZOLE [Suspect]
     Dosage: UNK, QD
     Route: 048
     Dates: start: 20130705, end: 20130709
  2. IBUPROFEN [Suspect]
     Dosage: 400 MG, QD
     Route: 048
     Dates: start: 20130705, end: 20130709
  3. BACTRIM [Suspect]
     Indication: RENAL COLIC
     Dosage: UNK UNK, QD
     Route: 048
     Dates: start: 20130705, end: 20130709

REACTIONS (1)
  - Hypersensitivity [Recovering/Resolving]
